FAERS Safety Report 18622932 (Version 1)
Quarter: 2020Q4

REPORT INFORMATION
  Report Type: Spontaneous
  Country: US (occurrence: US)
  Receive Date: 20201216
  Receipt Date: 20201216
  Transmission Date: 20210114
  Serious: No
  Sender: FDA-Public Use
  Company Number: None

PATIENT
  Age: 21 Year
  Sex: Female
  Weight: 67.5 kg

DRUGS (2)
  1. NUVARING [Suspect]
     Active Substance: ETHINYL ESTRADIOL\ETONOGESTREL
     Indication: CONTRACEPTION
     Dosage: ?          QUANTITY:1 RING;OTHER FREQUENCY:ONCE A MONTH;?
     Route: 067
     Dates: start: 20200904, end: 20201213
  2. NUVARING [Suspect]
     Active Substance: ETHINYL ESTRADIOL\ETONOGESTREL
     Indication: POLYCYSTIC OVARIES
     Dosage: ?          QUANTITY:1 RING;OTHER FREQUENCY:ONCE A MONTH;?
     Route: 067
     Dates: start: 20200904, end: 20201213

REACTIONS (2)
  - Androgenetic alopecia [None]
  - Alopecia [None]

NARRATIVE: CASE EVENT DATE: 20201213
